FAERS Safety Report 4284064-4 (Version None)
Quarter: 2004Q1

REPORT INFORMATION
  Report Type: 
  Country: None (occurrence: None)
  Receive Date: 20040130
  Receipt Date: 20040114
  Transmission Date: 20041129
  Serious: Yes (Other)
  Sender: FDA-Public Use
  Company Number: 2004US001994

PATIENT
  Age: 66 Year
  Sex: Female
  Weight: 75.3 kg

DRUGS (6)
  1. ALOXI [Suspect]
     Indication: PROPHYLAXIS OF NAUSEA AND VOMITING
     Dosage: 0.25 MG, SINGLE, INTRAVENOUS
     Route: 042
     Dates: start: 20031216, end: 20031216
  2. SCOPOLAMINE (HYOSCINE) [Concomitant]
  3. TOPROL-XL [Concomitant]
  4. HYDROCHLOROTHIAZIDE [Concomitant]
  5. ATIVAN [Concomitant]
  6. ZANTAC [Concomitant]

REACTIONS (8)
  - BLOOD PRESSURE INCREASED [None]
  - CONDITION AGGRAVATED [None]
  - COUGH [None]
  - ERYTHEMA [None]
  - HEART RATE INCREASED [None]
  - OROPHARYNGEAL SWELLING [None]
  - RESPIRATORY RATE INCREASED [None]
  - SNEEZING [None]
